FAERS Safety Report 8171720-0 (Version None)
Quarter: 2012Q1

REPORT INFORMATION
  Report Type: 
  Country: None (occurrence: None)
  Receive Date: 20120113
  Receipt Date: 20111101
  Transmission Date: 20120608
  Serious: No
  Sender: FDA-Public Use
  Company Number: PHEH2011US008626

PATIENT
  Sex: Female

DRUGS (5)
  1. XANAX [Concomitant]
  2. TRAMADOL HCL [Concomitant]
  3. PERCOCET [Concomitant]
  4. ILARIS [Suspect]
     Dosage: 180 MG, BIMONTHLY
  5. KADIAN [Concomitant]

REACTIONS (1)
  - IRRITABILITY [None]
